FAERS Safety Report 7546316-1 (Version None)
Quarter: 2011Q2

REPORT INFORMATION
  Report Type: 
  Country: None (occurrence: None)
  Receive Date: 20110614
  Receipt Date: 20060403
  Transmission Date: 20111010
  Serious: Yes (Other)
  Sender: FDA-Public Use
  Company Number: PHNR2005AU01596

PATIENT
  Sex: Male

DRUGS (2)
  1. CLOZAPINE [Suspect]
     Dates: start: 20020201, end: 20030701
  2. CLOZAPINE [Suspect]
     Indication: SCHIZOPHRENIA
     Dosage: 0 - 325 MG/DAY
     Dates: start: 20051013

REACTIONS (7)
  - HEART RATE INCREASED [None]
  - LEFT ATRIAL DILATATION [None]
  - ELECTROCARDIOGRAM ABNORMAL [None]
  - ECHOCARDIOGRAM ABNORMAL [None]
  - TRICUSPID VALVE INCOMPETENCE [None]
  - SINUS TACHYCARDIA [None]
  - ELECTROCARDIOGRAM T WAVE ABNORMAL [None]
